FAERS Safety Report 8090583-5 (Version None)
Quarter: 2012Q1

REPORT INFORMATION
  Report Type: 
  Country: None (occurrence: None)
  Receive Date: 20120129
  Receipt Date: 20111111
  Transmission Date: 20120608
  Serious: No
  Sender: FDA-Public Use
  Company Number: US-ABBOTT-11P-163-0873933-00

PATIENT
  Sex: Female
  Weight: 83.99 kg

DRUGS (3)
  1. HUMIRA [Suspect]
     Indication: ANKYLOSING SPONDYLITIS
     Dates: start: 20050101, end: 20111001
  2. HUMIRA [Suspect]
     Dates: start: 20111101
  3. SULFASALAZINE [Concomitant]
     Indication: ANKYLOSING SPONDYLITIS

REACTIONS (1)
  - INFECTION [None]
